FAERS Safety Report 4300528-9 (Version None)
Quarter: 2004Q1

REPORT INFORMATION
  Report Type: 
  Country: None (occurrence: None)
  Receive Date: 20040220
  Receipt Date: 20040209
  Transmission Date: 20041129
  Serious: Yes (Hospitalization, Other)
  Sender: FDA-Public Use
  Company Number: PHEH2004US01811

PATIENT
  Age: 72 Year
  Sex: Female

DRUGS (6)
  1. AREDIA [Suspect]
     Indication: BREAST CANCER
     Dates: start: 20010118, end: 20020301
  2. ZOMETA [Suspect]
     Dates: start: 20020301, end: 20030930
  3. ARIMIDEX [Concomitant]
  4. METHADONE HCL [Concomitant]
  5. ACIPHEX [Concomitant]
  6. PLAVIX [Concomitant]

REACTIONS (32)
  - ACUTE MYOCARDIAL INFARCTION [None]
  - ANAEMIA [None]
  - ANGINA UNSTABLE [None]
  - BACK PAIN [None]
  - BLOOD CALCIUM DECREASED [None]
  - BLOOD CREATININE INCREASED [None]
  - CATHETERISATION CARDIAC [None]
  - CHEST PAIN [None]
  - CONDITION AGGRAVATED [None]
  - CORONARY ARTERY DISEASE [None]
  - CORONARY ARTERY OCCLUSION [None]
  - DIARRHOEA [None]
  - DYSPNOEA [None]
  - GLOMERULONEPHRITIS FOCAL [None]
  - GLOMERULONEPHRITIS MEMBRANOUS [None]
  - GLOMERULONEPHROPATHY [None]
  - HOARSENESS [None]
  - HYPERHIDROSIS [None]
  - HYPERTENSION [None]
  - HYPOTENSION [None]
  - LOBAR PNEUMONIA [None]
  - MYOCARDIAL INFARCTION [None]
  - NAUSEA [None]
  - PNEUMONIA [None]
  - RADIATION INJURY [None]
  - RENAL IMPAIRMENT [None]
  - RENAL INTERSTITIAL FIBROSIS [None]
  - RENAL TUBULAR NECROSIS [None]
  - TRIPLE VESSEL BYPASS GRAFT [None]
  - VASCULAR INSUFFICIENCY [None]
  - VENTRICULAR TACHYCARDIA [None]
  - WEIGHT DECREASED [None]
